FAERS Safety Report 7911661-4 (Version None)
Quarter: 2011Q4

REPORT INFORMATION
  Report Type: 
  Country: None (occurrence: None)
  Receive Date: 20111114
  Receipt Date: 20111104
  Transmission Date: 20120403
  Serious: Yes (Other)
  Sender: FDA-Public Use
  Company Number: US-JNJFOC-20111100016

PATIENT
  Sex: Female
  Weight: 54.43 kg

DRUGS (7)
  1. LISINOPRIL [Concomitant]
     Indication: BLOOD PRESSURE
     Route: 048
  2. FENTANYL-100 [Suspect]
     Indication: HIP ARTHROPLASTY
     Dosage: NDC: 0781-7241-55
     Route: 062
     Dates: start: 20111027, end: 20111028
  3. SIMVASTATIN [Concomitant]
     Indication: BLOOD CHOLESTEROL
     Route: 048
  4. UNKNOWN MEDICATION [Concomitant]
     Indication: BLOOD CHOLESTEROL
     Route: 048
  5. UNKNOWN MEDICATION [Concomitant]
     Indication: BLOOD PRESSURE
     Route: 048
  6. FENTANYL-100 [Suspect]
     Indication: PROCEDURAL PAIN
     Dosage: NDC: 0781-7241-55
     Route: 062
     Dates: start: 20111027, end: 20111028
  7. UNKNOWN MEDICATION [Concomitant]
     Indication: THYROID DISORDER
     Route: 048

REACTIONS (7)
  - VOMITING [None]
  - NAUSEA [None]
  - HEADACHE [None]
  - FEELING ABNORMAL [None]
  - CONFUSIONAL STATE [None]
  - OFF LABEL USE [None]
  - DIZZINESS [None]
